FAERS Safety Report 26116053 (Version 1)
Quarter: 2025Q4

REPORT INFORMATION
  Report Type: Spontaneous
  Country: GB (occurrence: GB)
  Receive Date: 20251203
  Receipt Date: 20251203
  Transmission Date: 20260117
  Serious: Yes (Other)
  Sender: AUROBINDO
  Company Number: GB-MHRA-TPP23226192C9770663YC1763631632093

PATIENT
  Age: 24 Year
  Sex: Female
  Weight: 66 kg

DRUGS (3)
  1. AMOXICILLIN\CLARITHROMYCIN\LANSOPRAZOLE [Suspect]
     Active Substance: AMOXICILLIN\CLARITHROMYCIN\LANSOPRAZOLE
     Indication: Product used for unknown indication
     Dosage: 500 MILLIGRAM
     Route: 065
  2. AMOXICILLIN\CLARITHROMYCIN\LANSOPRAZOLE [Suspect]
     Active Substance: AMOXICILLIN\CLARITHROMYCIN\LANSOPRAZOLE
     Indication: Product used for unknown indication
     Dosage: 500 MILLIGRAM
     Route: 065
  3. AMOXICILLIN\CLARITHROMYCIN\LANSOPRAZOLE [Suspect]
     Active Substance: AMOXICILLIN\CLARITHROMYCIN\LANSOPRAZOLE
     Indication: Product used for unknown indication
     Dosage: 30 MILLIGRAM
     Route: 065

REACTIONS (1)
  - Skin exfoliation [Recovered/Resolved]
